FAERS Safety Report 10072710 (Version 2)
Quarter: 2014Q2

REPORT INFORMATION
  Report Type: Spontaneous
  Country: US (occurrence: US)
  Receive Date: 20140411
  Receipt Date: 20140506
  Transmission Date: 20141212
  Serious: Yes (Hospitalization, Other)
  Sender: FDA-Public Use
  Company Number: US-PFIZER INC-2014099727

PATIENT
  Age: 69 Year
  Sex: Female
  Weight: 46.71 kg

DRUGS (9)
  1. VFEND [Suspect]
     Indication: PULMONARY MYCOSIS
     Dosage: 200 MG, 2X/DAY
     Route: 048
     Dates: start: 20140109
  2. VFEND [Suspect]
     Indication: ASPERGILLUS INFECTION
  3. TRAMADOL HCL [Suspect]
     Indication: NEURALGIA
     Dosage: UNK
  4. COREG [Concomitant]
     Indication: ATRIAL FIBRILLATION
     Dosage: 12.5 MG, 2X/DAY
  5. PREDNISONE [Concomitant]
     Indication: GRANULOMATOSIS WITH POLYANGIITIS
     Dosage: 10 MG, DAILY
  6. PREDNISONE [Concomitant]
     Dosage: 2.5 MG, UNK
  7. GUAIFENESIN [Concomitant]
     Dosage: UNK
  8. LIDOCAIN HYDROCHLORIDE [Concomitant]
     Dosage: UNK
  9. COUMADINE [Concomitant]
     Dosage: UNK

REACTIONS (2)
  - Hallucination [Recovered/Resolved]
  - Fall [Unknown]
